FAERS Safety Report 22802530 (Version 4)
Quarter: 2024Q4

REPORT INFORMATION
  Report Type: Spontaneous
  Country: US (occurrence: US)
  Receive Date: 20230809
  Receipt Date: 20241009
  Transmission Date: 20250114
  Serious: No
  Sender: SANOFI AVENTIS
  Company Number: US-SA-SAC20230807000477

PATIENT
  Age: 52 Year
  Sex: Male

DRUGS (5)
  1. DUPIXENT [Suspect]
     Active Substance: DUPILUMAB
     Indication: Asthma
     Dosage: 600 MG, 1X
     Route: 058
     Dates: start: 20230721, end: 20230721
  2. DUPIXENT [Suspect]
     Active Substance: DUPILUMAB
     Dosage: 300 MG, QOW
     Route: 058
     Dates: start: 202308
  3. AIRDUO RESPICLICK [Concomitant]
     Active Substance: FLUTICASONE PROPIONATE\SALMETEROL XINAFOATE
     Dosage: UNK
     Route: 055
  4. ALBUTEROL SULFATE [Concomitant]
     Active Substance: ALBUTEROL SULFATE
     Dosage: UNK
     Route: 065
  5. MONTELUKAST [Concomitant]
     Active Substance: MONTELUKAST
     Dosage: UNK
     Route: 065

REACTIONS (6)
  - Sleep disorder due to a general medical condition [Unknown]
  - Infection [Not Recovered/Not Resolved]
  - Impaired quality of life [Unknown]
  - Asthma [Unknown]
  - Swelling face [Not Recovered/Not Resolved]
  - Drug ineffective [Unknown]

NARRATIVE: CASE EVENT DATE: 20230101
